FAERS Safety Report 6792527-2 (Version None)
Quarter: 2010Q2

REPORT INFORMATION
  Report Type: 
  Country: None (occurrence: None)
  Receive Date: 20100624
  Receipt Date: 20080815
  Transmission Date: 20101027
  Serious: No
  Sender: FDA-Public Use
  Company Number: US-PFIZER INC-2008068187

PATIENT
  Sex: Female
  Weight: 170 kg

DRUGS (1)
  1. PROVERA [Suspect]
     Indication: UTERINE HAEMORRHAGE
     Route: 048
     Dates: start: 20080701

REACTIONS (2)
  - ABDOMINAL PAIN UPPER [None]
  - METRORRHAGIA [None]
